FAERS Safety Report 5029170-1 (Version None)
Quarter: 2006Q2

REPORT INFORMATION
  Report Type: 
  Country: None (occurrence: None)
  Receive Date: 20060613
  Receipt Date: 20060531
  Transmission Date: 20061013
  Serious: Yes (Other)
  Sender: FDA-Public Use
  Company Number: HQWYE233409MAR06

PATIENT
  Age: 78 Year
  Sex: Female

DRUGS (3)
  1. PANTOPRAZOLE SODIUM [Suspect]
     Indication: HELICOBACTER INFECTION
     Dosage: 40 MG 1X PER 1 DAY, ORAL
     Route: 048
     Dates: start: 20060113, end: 20060120
  2. RAMIPRIL [Concomitant]
  3. VERAPAMIL [Concomitant]

REACTIONS (9)
  - ARTERIAL DISORDER [None]
  - ARTERIOSCLEROTIC RETINOPATHY [None]
  - ATRIAL FIBRILLATION [None]
  - CATARACT [None]
  - GLIOSIS [None]
  - INFARCTION [None]
  - OPTIC ATROPHY [None]
  - PITUITARY TUMOUR BENIGN [None]
  - SCOTOMA [None]
